FAERS Safety Report 13839576 (Version 1)
Quarter: 2017Q3

REPORT INFORMATION
  Report Type: Spontaneous
  Country: US (occurrence: US)
  Receive Date: 20170805
  Receipt Date: 20170805
  Transmission Date: 20171127
  Serious: No
  Sender: FDA-Public Use
  Company Number: None

PATIENT
  Age: 32 Year
  Sex: Female

DRUGS (16)
  1. CHOLECALCIFEROL [Concomitant]
     Active Substance: CHOLECALCIFEROL
  2. LANSOPRAZOLE. [Concomitant]
     Active Substance: LANSOPRAZOLE
  3. PANCREALIPASE [Concomitant]
     Active Substance: PANCRELIPASE
  4. VITAMIN E [Concomitant]
     Active Substance: .ALPHA.-TOCOPHEROL
  5. VALGANCICLOVIR. [Concomitant]
     Active Substance: VALGANCICLOVIR
  6. ACETAMINOPHEN. [Concomitant]
     Active Substance: ACETAMINOPHEN
  7. CETIRIZINE [Concomitant]
     Active Substance: CETIRIZINE HYDROCHLORIDE
  8. MIRTAZAPINE. [Concomitant]
     Active Substance: MIRTAZAPINE
  9. OSELTAMIVIR [Concomitant]
     Active Substance: OSELTAMIVIR
  10. PREDNISONE. [Concomitant]
     Active Substance: PREDNISONE
  11. CALCIUM + VITAMIN D [Concomitant]
     Active Substance: CALCIUM\VITAMIN D
  12. INSULIN ASPART [Concomitant]
     Active Substance: INSULIN ASPART
  13. INSULIN GLARGINE [Concomitant]
     Active Substance: INSULIN GLARGINE
  14. METOCLOPRAMIDE. [Concomitant]
     Active Substance: METOCLOPRAMIDE
  15. TACROLIMUS. [Suspect]
     Active Substance: TACROLIMUS
     Indication: PROPHYLAXIS
     Route: 048
     Dates: start: 20161215, end: 20170205
  16. ONDANSETRON [Concomitant]
     Active Substance: ONDANSETRON

REACTIONS (4)
  - Immunosuppressant drug level increased [None]
  - Acute kidney injury [None]
  - Influenza [None]
  - Neutropenic sepsis [None]

NARRATIVE: CASE EVENT DATE: 20170205
